FAERS Safety Report 7329059-9 (Version None)
Quarter: 2011Q1

REPORT INFORMATION
  Report Type: 
  Country: None (occurrence: None)
  Receive Date: 20110217
  Receipt Date: 20110203
  Transmission Date: 20110831
  Serious: Yes (Other)
  Sender: FDA-Public Use
  Company Number: DSA_44349_2010

PATIENT
  Sex: Female

DRUGS (6)
  1. SERTRALINE [Concomitant]
  2. PARAFLEX COMP [Concomitant]
  3. VOXRA (VOXRA-BUPROPION HYDROCHLORIDE) (NOT SPECIFIED) [Suspect]
     Indication: DEPRESSION
     Dosage: (300 MG QD ORAL) ; (150 MG QD ORAL)
     Route: 048
     Dates: start: 20100315
  4. VOXRA (VOXRA-BUPROPION HYDROCHLORIDE) (NOT SPECIFIED) [Suspect]
     Indication: DEPRESSION
     Dosage: (300 MG QD ORAL) ; (150 MG QD ORAL)
     Route: 048
     Dates: start: 20100101, end: 20100301
  5. SUMATRIPTAN [Concomitant]
  6. PROPRANOLOL HYDROCHLORIDE [Concomitant]

REACTIONS (5)
  - BLEEDING TIME PROLONGED [None]
  - MENORRHAGIA [None]
  - INCREASED TENDENCY TO BRUISE [None]
  - ECCHYMOSIS [None]
  - DRUG INEFFECTIVE [None]
